FAERS Safety Report 5816332-6 (Version None)
Quarter: 2008Q3

REPORT INFORMATION
  Report Type: 
  Country: None (occurrence: None)
  Receive Date: 20080716
  Receipt Date: 20080220
  Transmission Date: 20090109
  Serious: Yes (Other)
  Sender: FDA-Public Use
  Company Number: 2008US000612

PATIENT
  Age: 78 Year
  Sex: Female
  Weight: 76.6 kg

DRUGS (6)
  1. ADENOSCAN [Suspect]
     Indication: CARDIAC STRESS TEST
     Dosage: 51 MG, TOTAL DOSE, IV NOS
     Route: 042
     Dates: start: 20071019, end: 20071019
  2. VITAMIN E [Concomitant]
  3. ASPIRIN [Concomitant]
  4. HYDROCHLOROTHIAZIDE [Concomitant]
  5. ALEVE (CAPLET) [Concomitant]
  6. CARTID [Concomitant]

REACTIONS (1)
  - ATRIOVENTRICULAR BLOCK [None]
